FAERS Safety Report 5990547-9 (Version None)
Quarter: 2008Q4

REPORT INFORMATION
  Report Type: 
  Country: None (occurrence: None)
  Receive Date: 20081209
  Receipt Date: 20081125
  Transmission Date: 20090506
  Serious: Yes (Hospitalization)
  Sender: FDA-Public Use
  Company Number: FABR-1000539

PATIENT
  Age: 35 Year
  Sex: Male

DRUGS (2)
  1. FABRAZYME [Suspect]
     Indication: FABRY'S DISEASE
     Dosage: 70 MG, QW, INTRAVENOUS
     Route: 042
     Dates: start: 20040513
  2. INSULIN (INSULIN) [Concomitant]

REACTIONS (8)
  - CEREBROVASCULAR ACCIDENT [None]
  - DEPRESSION [None]
  - DIABETIC KETOACIDOSIS [None]
  - DISEASE RECURRENCE [None]
  - HYPERGLYCAEMIA [None]
  - INCORRECT DOSE ADMINISTERED [None]
  - OVERDOSE [None]
  - SUICIDAL IDEATION [None]
